FAERS Safety Report 21710602 (Version 1)
Quarter: 2022Q4

REPORT INFORMATION
  Report Type: Spontaneous
  Country: PE (occurrence: PE)
  Receive Date: 20221212
  Receipt Date: 20221212
  Transmission Date: 20230112
  Serious: Yes (Other)
  Sender: FDA-Public Use
  Company Number: PE-002147023-NVSC2022PE260985

PATIENT
  Age: 46 Year
  Sex: Male
  Weight: 116 kg

DRUGS (2)
  1. COSENTYX [Suspect]
     Active Substance: SECUKINUMAB
     Indication: Product used for unknown indication
     Dosage: 300 MG, Q4W
     Route: 058
     Dates: start: 20200701, end: 20211106
  2. COSENTYX [Suspect]
     Active Substance: SECUKINUMAB
     Dosage: 150 MG (2 AMPOULE) Q4W
     Route: 058

REACTIONS (3)
  - Tuberculosis [Unknown]
  - Bronchiectasis [Unknown]
  - Epilepsy [Unknown]

NARRATIVE: CASE EVENT DATE: 20211101
